FAERS Safety Report 9127668 (Version 2)
Quarter: 2014Q2

REPORT INFORMATION
  Report Type: Report from Study
  Country: US (occurrence: US)
  Receive Date: 20130228
  Receipt Date: 20140618
  Transmission Date: 20141212
  Serious: Yes (Hospitalization, Other)
  Sender: FDA-Public Use
  Company Number: US-NAPPMUNDI-USA-2013-0099100

PATIENT
  Age: 53 Year
  Sex: Female

DRUGS (3)
  1. OXYCONTIN (NDA 22-272) [Suspect]
     Indication: INTERVERTEBRAL DISC DEGENERATION
     Dosage: UNK
     Dates: start: 1989
  2. OXYCONTIN (NDA 22-272) [Suspect]
     Indication: CARPAL TUNNEL SYNDROME
     Dosage: 160 MG, BID
     Route: 048
     Dates: start: 20140603
  3. OXYCONTIN (NDA 22-272) [Suspect]
     Indication: SYSTEMIC LUPUS ERYTHEMATOSUS
     Dosage: 160 MG, BID
     Route: 048

REACTIONS (3)
  - Renal neoplasm [Recovering/Resolving]
  - Hip arthroplasty [Unknown]
  - Cholecystectomy [Unknown]
